FAERS Safety Report 19251753 (Version 1)
Quarter: 2021Q2

REPORT INFORMATION
  Report Type: Report from Study
  Country: DE (occurrence: DE)
  Receive Date: 20210512
  Receipt Date: 20210512
  Transmission Date: 20210717
  Serious: Yes (Hospitalization)
  Sender: FDA-Public Use
  Company Number: DE-GILEAD-2021-0529866

PATIENT
  Sex: Female
  Weight: 57 kg

DRUGS (2)
  1. SACITUZUMAB GOVITECAN. [Suspect]
     Active Substance: SACITUZUMAB GOVITECAN
     Indication: BREAST CANCER METASTATIC
     Dosage: 550 MG ON DAY 1 AND DAY 8 OF EACH CYCLE EVERY 3 WEEKS
     Route: 042
     Dates: start: 20200615
  2. SACITUZUMAB GOVITECAN. [Suspect]
     Active Substance: SACITUZUMAB GOVITECAN
     Dosage: 570 MG ON DAY 1 AND DAY 8 OF EACH CYCLE EVERY 3 WEEKS
     Route: 042

REACTIONS (1)
  - Myocardial ischaemia [Recovered/Resolved]

NARRATIVE: CASE EVENT DATE: 20210420
